FAERS Safety Report 10150761 (Version 1)
Quarter: 2014Q2

REPORT INFORMATION
  Report Type: Spontaneous
  Country: US (occurrence: US)
  Receive Date: 20140502
  Receipt Date: 20140502
  Transmission Date: 20141212
  Serious: No
  Sender: FDA-Public Use
  Company Number: US-ASTRAZENECA-2013SE31624

PATIENT
  Age: 76 Year
  Sex: Male

DRUGS (3)
  1. PRILOSEC OTC [Suspect]
     Dosage: ONE PILL. ONCE A DAY CRUSHED IN APPLESAUCE.
     Route: 050
  2. HE TAKES A LOT OF MEDICATION INCLUDING WARFARIN WHICH IS A BLOOD THINN [Concomitant]
  3. WARFARIN [Concomitant]

REACTIONS (4)
  - Dysphagia [Unknown]
  - No adverse event [Unknown]
  - Wrong technique in drug usage process [Unknown]
  - Labelled drug-drug interaction medication error [Unknown]
